FAERS Safety Report 9639396 (Version 2)
Quarter: 2021Q2

REPORT INFORMATION
  Report Type: Other
  Country: CA (occurrence: CA)
  Receive Date: 20131022
  Receipt Date: 20210517
  Transmission Date: 20210717
  Serious: Yes (Other)
  Sender: FDA-Public Use
  Company Number: CA-ROCHE-1291495

PATIENT
  Age: 49 Year
  Sex: Female

DRUGS (6)
  1. ACTEMRA [Suspect]
     Active Substance: TOCILIZUMAB
     Route: 042
  2. ACTEMRA [Suspect]
     Active Substance: TOCILIZUMAB
     Indication: RHEUMATOID ARTHRITIS
     Route: 042
     Dates: start: 20121205
  3. REMICADE [Concomitant]
     Active Substance: INFLIXIMAB
  4. METHOTREXATE. [Concomitant]
     Active Substance: METHOTREXATE
  5. DEPO?MEDROL [Concomitant]
     Active Substance: METHYLPREDNISOLONE ACETATE
     Route: 030
     Dates: start: 20200206
  6. ARAVA [Concomitant]
     Active Substance: LEFLUNOMIDE
     Route: 048

REACTIONS (8)
  - Fall [Unknown]
  - Foot deformity [Unknown]
  - Toe operation [Unknown]
  - Joint range of motion decreased [Unknown]
  - Foot operation [Unknown]
  - Carpal tunnel syndrome [Unknown]
  - Hyperkeratosis [Unknown]
  - Hypoaesthesia [Unknown]

NARRATIVE: CASE EVENT DATE: 202001
